FAERS Safety Report 19846724 (Version 1)
Quarter: 2021Q3

REPORT INFORMATION
  Report Type: Spontaneous
  Country: NL (occurrence: NL)
  Receive Date: 20210917
  Receipt Date: 20210917
  Transmission Date: 20211014
  Serious: Yes (Other)
  Sender: FDA-Public Use
  Company Number: NL-TEVA-2021-NL-1952009

PATIENT
  Age: 19 Year
  Sex: Female
  Weight: 65 kg

DRUGS (3)
  1. BUPROPION TABLET MGA 300MG / BRAND NAME NOT SPECIFIED [Suspect]
     Active Substance: BUPROPION HYDROCHLORIDE
     Indication: ATTENTION DEFICIT HYPERACTIVITY DISORDER
     Dosage: 300 MILLIGRAM DAILY; 1 TIME DAILY 1 TABLET:THERAPY END DATE:ASKU
     Dates: start: 202108
  2. FERROFUMARAAT TABLET 200MG / BRAND NAME NOT SPECIFIED [Concomitant]
     Active Substance: FERROUS FUMARATE
     Dosage: 200 MG (MILLIGRAM)THERAPY START DATE :THERAPY END DATE :ASKU
  3. BUPROPION TABLET MGA 300MG / BRAND NAME NOT SPECIFIED [Suspect]
     Active Substance: BUPROPION HYDROCHLORIDE
     Indication: DEPRESSION

REACTIONS (1)
  - Epilepsy [Recovered/Resolved]

NARRATIVE: CASE EVENT DATE: 20210821
